FAERS Safety Report 11022973 (Version 2)
Quarter: 2015Q2

REPORT INFORMATION
  Report Type: Spontaneous
  Country: US (occurrence: US)
  Receive Date: 20150413
  Receipt Date: 20150413
  Transmission Date: 20150821
  Serious: No
  Sender: FDA-Public Use
  Company Number: US-ASTELLAS-2014US011392

PATIENT
  Age: 53 Year
  Sex: Female

DRUGS (1)
  1. PROTOPIC [Suspect]
     Active Substance: TACROLIMUS
     Indication: ECZEMA
     Dosage: UNK UNK, UNKNOWN FREQ.
     Route: 061

REACTIONS (2)
  - Pain in extremity [Unknown]
  - Pruritus [Unknown]
